FAERS Safety Report 18670664 (Version 1)
Quarter: 2020Q4

REPORT INFORMATION
  Report Type: Report from Study
  Country: DE (occurrence: DE)
  Receive Date: 20201228
  Receipt Date: 20201228
  Transmission Date: 20210114
  Serious: Yes (Hospitalization)
  Sender: FDA-Public Use
  Company Number: DE-TAKEDA-DE201724425

PATIENT
  Sex: Female

DRUGS (12)
  1. TEDUGLUTIDE [Suspect]
     Active Substance: TEDUGLUTIDE
     Indication: SHORT-BOWEL SYNDROME
     Dosage: 0.03 MG/KG, 1X/DAY:QD
     Route: 058
     Dates: start: 20170314, end: 20170911
  2. TEDUGLUTIDE [Suspect]
     Active Substance: TEDUGLUTIDE
     Indication: SHORT-BOWEL SYNDROME
     Dosage: 0.03 MG/KG, 1X/DAY:QD
     Route: 058
     Dates: start: 20170314, end: 20170911
  3. TEDUGLUTIDE [Suspect]
     Active Substance: TEDUGLUTIDE
     Dosage: 0.05 MG/KG, 1X/DAY:QD
     Route: 058
     Dates: start: 20160831, end: 20170224
  4. CALCIUM SANDOZ                     /00060701/ [Concomitant]
     Active Substance: CALCIUM GLUCONATE
     Indication: SUPPLEMENTATION THERAPY
  5. TEDUGLUTIDE [Suspect]
     Active Substance: TEDUGLUTIDE
     Indication: SHORT-BOWEL SYNDROME
     Dosage: 0.03 MG/KG, 1X/DAY:QD
     Route: 058
     Dates: start: 20170314, end: 20170911
  6. TEDUGLUTIDE [Suspect]
     Active Substance: TEDUGLUTIDE
     Dosage: 0.05 MG/KG, 1X/DAY:QD
     Route: 058
     Dates: start: 20160831, end: 20170224
  7. TEDUGLUTIDE [Suspect]
     Active Substance: TEDUGLUTIDE
     Dosage: 0.05 MG/KG, 1X/DAY:QD
     Route: 058
     Dates: start: 20160831, end: 20170224
  8. TEDUGLUTIDE [Suspect]
     Active Substance: TEDUGLUTIDE
     Indication: SHORT-BOWEL SYNDROME
     Dosage: 0.03 MG/KG, 1X/DAY:QD
     Route: 058
     Dates: start: 20170314, end: 20170911
  9. TEDUGLUTIDE [Suspect]
     Active Substance: TEDUGLUTIDE
     Dosage: 0.05 MG/KG, 1X/DAY:QD
     Route: 058
     Dates: start: 20160831, end: 20170224
  10. CEFUROXIME. [Concomitant]
     Active Substance: CEFUROXIME
     Indication: PYELONEPHRITIS
  11. NOVAMINSULFON [Concomitant]
     Active Substance: METAMIZOLE
     Indication: ABDOMINAL PAIN
  12. BUSCOPAN [Concomitant]
     Active Substance: BUTYLSCOPOLAMINE BROMIDE
     Indication: ABDOMINAL PAIN

REACTIONS (2)
  - End stage renal disease [Recovered/Resolved]
  - Device related sepsis [Recovered/Resolved]

NARRATIVE: CASE EVENT DATE: 20170901
